FAERS Safety Report 5053587-2 (Version None)
Quarter: 2006Q3

REPORT INFORMATION
  Report Type: 
  Country: None (occurrence: None)
  Receive Date: 20060712
  Receipt Date: 20060626
  Transmission Date: 20061208
  Serious: Yes (Other)
  Sender: FDA-Public Use
  Company Number: ES200602000333

PATIENT
  Age: 18 Year
  Sex: Female

DRUGS (2)
  1. XIGRIS [Suspect]
     Indication: MENINGOCOCCAL SEPSIS
     Dosage: 20 MG, OTHER, INTRAVENOUS
     Route: 042
     Dates: start: 20060111, end: 20060113
  2. CORTICOSTEROIDS [Concomitant]

REACTIONS (2)
  - PULMONARY HAEMORRHAGE [None]
  - THROMBOCYTOPENIA [None]
